FAERS Safety Report 9467149 (Version 1)
Quarter: 2013Q3

REPORT INFORMATION
  Report Type: Spontaneous
  Country: US (occurrence: US)
  Receive Date: 20130820
  Receipt Date: 20130820
  Transmission Date: 20140515
  Serious: Yes (Other)
  Sender: FDA-Public Use
  Company Number: US-009507513-1308USA005297

PATIENT
  Age: 50 Year
  Sex: Male
  Weight: 104 kg

DRUGS (6)
  1. ZEMURON [Suspect]
     Indication: MAINTENANCE OF ANAESTHESIA
     Dosage: 50 MG, UNK
  2. CEPHALOTHIN SODIUM [Suspect]
     Indication: ANTIBIOTIC PROPHYLAXIS
     Dosage: 2 G, UNK
     Route: 042
  3. FENTANYL [Concomitant]
     Dosage: 200 MICROGRAM, UNK
     Route: 042
  4. PROPOFOL [Concomitant]
     Dosage: 200 MG, UNK
     Route: 042
  5. DESFLURANE [Concomitant]
     Indication: MAINTENANCE OF ANAESTHESIA
     Dosage: 4.5 %, UNK
  6. DESFLURANE [Concomitant]
     Dosage: 6.0 %, UNK

REACTIONS (1)
  - Anaphylactic shock [Recovered/Resolved]
